FAERS Safety Report 4475270-4 (Version None)
Quarter: 2004Q4

REPORT INFORMATION
  Report Type: 
  Country: None (occurrence: None)
  Receive Date: 20041013
  Receipt Date: 20041013
  Transmission Date: 20050328
  Serious: Yes (Hospitalization)
  Sender: FDA-Public Use
  Company Number: None

PATIENT
  Age: 75 Year
  Sex: Male
  Weight: 63.05 kg

DRUGS (13)
  1. HEPARIN [Suspect]
     Indication: ANTICOAGULANT THERAPY
     Dosage: 1144.8 UNITS/HR IV
     Route: 042
     Dates: start: 20040611, end: 20040613
  2. WARFARIN SODIUM [Suspect]
     Indication: ANTICOAGULANT THERAPY
     Dosage: 10 MG PO
     Route: 048
     Dates: start: 20040612
  3. METHOTREXATE [Concomitant]
  4. ASPIRIN [Concomitant]
  5. PREDNISONE [Concomitant]
  6. LEVAQUIN [Concomitant]
  7. TYLENOL [Concomitant]
  8. ASPIRIN [Concomitant]
  9. FLONASE [Concomitant]
  10. FOLIC ACID [Concomitant]
  11. .. [Concomitant]
  12. DEMEROL [Concomitant]
  13. PHENERGAN [Concomitant]

REACTIONS (1)
  - RETROPERITONEAL HAEMATOMA [None]
